FAERS Safety Report 5640994-X (Version None)
Quarter: 2008Q1

REPORT INFORMATION
  Report Type: 
  Country: None (occurrence: None)
  Receive Date: 20080225
  Receipt Date: 20080213
  Transmission Date: 20080703
  Serious: Yes (Death, Hospitalization)
  Sender: FDA-Public Use
  Company Number: B0509201A

PATIENT
  Age: 47 Year
  Sex: Male

DRUGS (4)
  1. LAMIVUDINE [Suspect]
     Indication: HIV INFECTION
     Dates: start: 20030513
  2. STAVUDINE [Suspect]
     Indication: HIV INFECTION
     Dates: start: 20030513
  3. LOPINAVIR AND RITONAVIR [Suspect]
     Indication: HIV INFECTION
     Dates: start: 20030513
  4. CO-TRIMOXAZOLE [Concomitant]

REACTIONS (11)
  - AGRANULOCYTOSIS [None]
  - ANOREXIA [None]
  - ASTHENIA [None]
  - BACTERIAL SEPSIS [None]
  - BURKITT'S LYMPHOMA [None]
  - HEPATOSPLENOMEGALY [None]
  - IMMUNE RECONSTITUTION SYNDROME [None]
  - LYMPHADENOPATHY [None]
  - MYCOBACTERIAL INFECTION [None]
  - PNEUMONITIS [None]
  - REFUSAL OF TREATMENT BY PATIENT [None]
